FAERS Safety Report 24253583 (Version 2)
Quarter: 2024Q3

REPORT INFORMATION
  Report Type: Report from Study
  Country: PH (occurrence: PH)
  Receive Date: 20240827
  Receipt Date: 20240906
  Transmission Date: 20241017
  Serious: Yes (Death, Other)
  Sender: PFIZER
  Company Number: PH-TAKEDA-2024TUS021384

PATIENT
  Age: 52 Year
  Sex: Male

DRUGS (1)
  1. ADCETRIS [Suspect]
     Active Substance: BRENTUXIMAB VEDOTIN
     Indication: Cutaneous T-cell lymphoma
     Dosage: UNK, Q3WEEKS (2 DOSES, Q3WEEKS)
     Route: 042

REACTIONS (4)
  - Neoplasm progression [Fatal]
  - Chills [Recovered/Resolved]
  - Asthenia [Recovered/Resolved]
  - Pyrexia [Recovered/Resolved]
